FAERS Safety Report 5376925-X (Version None)
Quarter: 2007Q3

REPORT INFORMATION
  Report Type: 
  Country: None (occurrence: None)
  Receive Date: 20070703
  Receipt Date: 20070626
  Transmission Date: 20080115
  Serious: Yes (Death, Hospitalization)
  Sender: FDA-Public Use
  Company Number: TW-AVENTIS-200715733GDDC

PATIENT
  Age: 86 Year
  Sex: Male

DRUGS (3)
  1. FLUOROURACIL [Suspect]
  2. FOLIC ACID [Suspect]
  3. RADIOTHERAPY [Suspect]
     Dosage: DOSE: 4500CGY/25 FRACTIONS

REACTIONS (1)
  - ENTEROCOLITIS [None]
